FAERS Safety Report 7496660-1 (Version None)
Quarter: 2011Q2

REPORT INFORMATION
  Report Type: 
  Country: None (occurrence: None)
  Receive Date: 20110523
  Receipt Date: 20110513
  Transmission Date: 20111010
  Serious: Yes (Hospitalization)
  Sender: FDA-Public Use
  Company Number: A0928122A

PATIENT
  Sex: Female
  Weight: 105.4 kg

DRUGS (5)
  1. TRASTUZUMAB [Suspect]
     Indication: BREAST CANCER
     Dosage: 2MGK CYCLIC
     Route: 042
     Dates: start: 20110405
  2. CARBOPLATIN [Suspect]
     Indication: BREAST CANCER
     Dosage: 6MGML CYCLIC
     Route: 042
     Dates: start: 20110405
  3. DOCETAXEL [Suspect]
     Indication: BREAST CANCER
     Dosage: 75MGM2 CYCLIC
     Route: 042
     Dates: start: 20110405
  4. LAPATINIB [Suspect]
     Indication: BREAST CANCER
     Dosage: 750MG PER DAY
     Route: 048
     Dates: start: 20110405
  5. NEULASTA [Concomitant]

REACTIONS (1)
  - CELLULITIS [None]
